FAERS Safety Report 13930137 (Version 6)
Quarter: 2017Q4

REPORT INFORMATION
  Report Type: Spontaneous
  Country: JP (occurrence: JP)
  Receive Date: 20170901
  Receipt Date: 20171027
  Transmission Date: 20180320
  Serious: Yes (Death)
  Sender: FDA-Public Use
  Company Number: JP-PFIZER INC-2017374459

PATIENT
  Age: 44 Year
  Sex: Female
  Weight: 47.25 kg

DRUGS (13)
  1. MAGMITT [Concomitant]
     Active Substance: MAGNESIUM OXIDE
     Dosage: 1.32 G, 1X/DAY
     Route: 048
  2. TRAMCET [Concomitant]
     Active Substance: ACETAMINOPHEN\TRAMADOL
     Dosage: 1 DF, 4X/DAY
     Route: 048
     Dates: start: 20170525
  3. ABILIFY [Concomitant]
     Active Substance: ARIPIPRAZOLE
     Dosage: 3 MG, 1X/DAY
     Route: 048
     Dates: start: 20161228
  4. RHYTHMY [Concomitant]
     Active Substance: RILMAZAFONE HYDROCHLORIDE
     Dosage: 2 MG, 1X/DAY
     Route: 048
  5. CONTOMIN [Concomitant]
     Active Substance: CHLORPROMAZINE
     Dosage: 25 MG, 1X/DAY
     Route: 048
  6. PYRETHIA [Concomitant]
     Active Substance: PROMETHAZINE HYDROCHLORIDE
     Dosage: 25 MG, 1X/DAY
     Route: 048
  7. ZOLPIDEM [Concomitant]
     Active Substance: ZOLPIDEM\ZOLPIDEM TARTRATE
     Dosage: 10 MG, 1X/DAY
     Route: 048
  8. WYPAX [Concomitant]
     Active Substance: LORAZEPAM
     Dosage: 0.5 MG, 12XDAY
     Route: 048
  9. VOLTAREN [Concomitant]
     Active Substance: DICLOFENAC SODIUM
     Dosage: 50 MG, 1X/DAY
     Route: 054
  10. BENZALIN [Concomitant]
     Active Substance: NITRAZEPAM
     Dosage: 10 MG, 1X/DAY
     Route: 048
  11. EFFEXOR [Suspect]
     Active Substance: VENLAFAXINE HYDROCHLORIDE
     Indication: DEPRESSION
     Dosage: 225 MG, DAILY
     Route: 048
     Dates: start: 20170404
  12. FLUNITRAZEPAM [Concomitant]
     Active Substance: FLUNITRAZEPAM
     Dosage: 4 MG, 1X/DAY
     Route: 048
  13. ALOSENN [Concomitant]
     Active Substance: SENNA LEAF
     Dosage: 1.5 G, 1X/DAY
     Route: 048

REACTIONS (1)
  - Completed suicide [Fatal]

NARRATIVE: CASE EVENT DATE: 20170816
